FAERS Safety Report 19149225 (Version 1)
Quarter: 2021Q2

REPORT INFORMATION
  Report Type: Spontaneous
  Country: CN (occurrence: CN)
  Receive Date: 20210417
  Receipt Date: 20210417
  Transmission Date: 20210717
  Serious: Yes (Other)
  Sender: FDA-Public Use
  Company Number: CN-ROCHE-2805846

PATIENT
  Age: 37 Year
  Sex: Male

DRUGS (5)
  1. ETOPOSIDE. [Concomitant]
     Active Substance: ETOPOSIDE
     Indication: PINEAL NEOPLASM
     Dates: start: 20210108, end: 20210112
  2. OXALIPLATIN. [Suspect]
     Active Substance: OXALIPLATIN
     Indication: PINEAL NEOPLASM
     Route: 041
     Dates: start: 20210112, end: 20210112
  3. XELODA [Suspect]
     Active Substance: CAPECITABINE
     Indication: PINEAL NEOPLASM
     Route: 041
     Dates: start: 20210111, end: 20210213
  4. AVASTIN [Suspect]
     Active Substance: BEVACIZUMAB
     Indication: PINEAL NEOPLASM
     Route: 065
  5. CISPLATIN. [Concomitant]
     Active Substance: CISPLATIN
     Indication: PINEAL NEOPLASM
     Dates: start: 20210108, end: 20210112

REACTIONS (2)
  - Platelet count decreased [Not Recovered/Not Resolved]
  - Off label use [Unknown]

NARRATIVE: CASE EVENT DATE: 20210202
